FAERS Safety Report 4980907-7 (Version None)
Quarter: 2006Q2

REPORT INFORMATION
  Report Type: 
  Country: None (occurrence: None)
  Receive Date: 20060424
  Receipt Date: 20050125
  Transmission Date: 20061013
  Serious: Yes (Hospitalization, Disabling)
  Sender: FDA-Public Use
  Company Number: US-MERCK-0501USA04120

PATIENT
  Age: 52 Year
  Sex: Male
  Weight: 95 kg

DRUGS (23)
  1. VIOXX [Suspect]
     Indication: OSTEOARTHRITIS
     Route: 048
     Dates: start: 20000101, end: 20030301
  2. VIOXX [Suspect]
     Route: 048
     Dates: start: 20030301, end: 20030301
  3. VIOXX [Suspect]
     Route: 048
     Dates: start: 20030301, end: 20041014
  4. VIOXX [Suspect]
     Route: 048
     Dates: start: 20010823, end: 20010826
  5. VIOXX [Suspect]
     Indication: MUSCULOSKELETAL DISCOMFORT
     Route: 048
     Dates: start: 20000101, end: 20030301
  6. VIOXX [Suspect]
     Route: 048
     Dates: start: 20030301, end: 20030301
  7. VIOXX [Suspect]
     Route: 048
     Dates: start: 20030301, end: 20041014
  8. VIOXX [Suspect]
     Route: 048
     Dates: start: 20010823, end: 20010826
  9. COZAAR [Concomitant]
     Indication: HYPERTENSION
     Route: 048
     Dates: start: 20010501
  10. TOPROL-XL [Concomitant]
     Indication: HYPERTENSION
     Route: 065
     Dates: start: 20000101
  11. COUMADIN [Concomitant]
     Indication: ANTICOAGULANT THERAPY
     Route: 065
     Dates: start: 19970101
  12. LIPITOR [Concomitant]
     Indication: BLOOD CHOLESTEROL INCREASED
     Route: 065
     Dates: start: 19860101
  13. FLONASE [Concomitant]
     Route: 065
  14. CIPRO [Concomitant]
     Route: 065
  15. PROMETHAZINE [Concomitant]
     Route: 065
  16. SPIRONOLACTONE [Concomitant]
     Route: 065
  17. TOBRADEX [Concomitant]
     Route: 065
  18. AGGRENOX [Concomitant]
     Route: 065
  19. HYDROCODONE BITARTRATE [Concomitant]
     Route: 065
  20. PREVPAC [Concomitant]
     Route: 065
  21. METOPROLOL [Concomitant]
     Route: 065
  22. LOPRESSOR [Concomitant]
     Route: 065
  23. NIACIN [Suspect]
     Route: 065

REACTIONS (27)
  - AMBLYOPIA [None]
  - ANAEMIA [None]
  - ANGINA UNSTABLE [None]
  - BLOOD TRIGLYCERIDES INCREASED [None]
  - CAMPYLOBACTER GASTROENTERITIS [None]
  - CARDIAC MURMUR [None]
  - CAROTID BRUIT [None]
  - CORONARY ARTERY DISEASE [None]
  - DEHYDRATION [None]
  - DYSPNOEA EXERTIONAL [None]
  - EMBOLIC STROKE [None]
  - ESSENTIAL HYPERTENSION [None]
  - FLUSHING [None]
  - GASTRITIS [None]
  - HAEMATURIA [None]
  - HAEMORRHOIDS [None]
  - HEART RATE IRREGULAR [None]
  - METABOLIC SYNDROME [None]
  - MUSCULOSKELETAL DISCOMFORT [None]
  - MYOCARDIAL INFARCTION [None]
  - NEPHROLITHIASIS [None]
  - PAIN [None]
  - PALPITATIONS [None]
  - RENAL CYST [None]
  - THYROID DISORDER [None]
  - VENTRICULAR EXTRASYSTOLES [None]
  - WEIGHT INCREASED [None]
